FAERS Safety Report 4479779-9 (Version None)
Quarter: 2004Q3

REPORT INFORMATION
  Report Type: 
  Country: None (occurrence: None)
  Receive Date: 20040923
  Receipt Date: 20040611
  Transmission Date: 20050211
  Serious: No
  Sender: FDA-Public Use
  Company Number: USA040362845

PATIENT
  Age: 66 Year
  Sex: Female
  Weight: 59 kg

DRUGS (4)
  1. FORTEO [Suspect]
     Indication: OSTEOPOROSIS
     Dosage: 20 UG/1 DAY
     Dates: start: 20040303
  2. CALCIUM W/MAGNESIUM [Concomitant]
  3. MULTIVITAMINS NOS (MULTIVITAMINS NOS) [Concomitant]
  4. EPINEPHRINE HYDROCHLORIDE [Concomitant]

REACTIONS (3)
  - ARTHRALGIA [None]
  - ASTHENIA [None]
  - INJECTION SITE PAIN [None]
